FAERS Safety Report 10153889 (Version 2)
Quarter: 2014Q2

REPORT INFORMATION
  Report Type: Report from Study
  Country: FR (occurrence: FR)
  Receive Date: 20140506
  Receipt Date: 20140609
  Transmission Date: 20141212
  Serious: Yes (Other)
  Sender: FDA-Public Use
  Company Number: FR-ROCHE-1388765

PATIENT
  Sex: Female
  Weight: 87 kg

DRUGS (3)
  1. CAPECITABINE [Suspect]
     Indication: BREAST CANCER
     Dosage: LAST DOSE PRIOR TO SAE: 25/JAN/2013
     Route: 048
     Dates: start: 20121024
  2. DOCETAXEL [Suspect]
     Indication: BREAST CANCER
     Dosage: LAST DOSE PRIOR TO SAE: 18/JUL/2012,
     Route: 042
     Dates: start: 20120424
  3. DOCETAXEL [Suspect]
     Route: 042
     Dates: end: 200806

REACTIONS (1)
  - Breast cancer [Not Recovered/Not Resolved]
